FAERS Safety Report 4452478-5 (Version None)
Quarter: 2004Q3

REPORT INFORMATION
  Report Type: 
  Country: None (occurrence: None)
  Receive Date: 20040916
  Receipt Date: 20040909
  Transmission Date: 20050211
  Serious: Yes (Disabling)
  Sender: FDA-Public Use
  Company Number: OMPQ-NO-0409L-1187

PATIENT
  Age: 27 Year
  Sex: Male

DRUGS (2)
  1. OMNIPAQUE 180 [Suspect]
     Indication: THERAPEUTIC EMBOLISATION
     Dosage: SINGLE DOSE, I.A.
     Route: 014
  2. ANTI-TUBERCULOUS THERAPY [Concomitant]

REACTIONS (6)
  - ASTHENIA [None]
  - EXTRAVASATION [None]
  - MYELITIS TRANSVERSE [None]
  - NUCLEAR MAGNETIC RESONANCE IMAGING ABNORMAL [None]
  - SPINAL CORD OEDEMA [None]
  - URINARY RETENTION [None]
